FAERS Safety Report 10590800 (Version 3)
Quarter: 2014Q4

REPORT INFORMATION
  Report Type: Spontaneous
  Country: BR (occurrence: BR)
  Receive Date: 20141118
  Receipt Date: 20141223
  Transmission Date: 20150529
  Serious: Yes (Other)
  Sender: FDA-Public Use
  Company Number: BR-PFIZER INC-2014302713

PATIENT
  Age: 43 Year
  Sex: Male

DRUGS (8)
  1. MINIDIAB [Suspect]
     Active Substance: GLIPIZIDE
     Indication: DIABETES MELLITUS
     Dosage: 5 MG, 2X/DAY (IN THE MORNING AND AT NIGHT)
     Route: 048
     Dates: start: 2014
  2. MINIDIAB [Suspect]
     Active Substance: GLIPIZIDE
     Dosage: 5 MG, 2X/DAY (IN THE MORNING AND AT NIGHT)
     Route: 048
     Dates: start: 2014
  3. ENALAPRIL [Concomitant]
     Active Substance: ENALAPRIL
     Indication: BLOOD PRESSURE INCREASED
     Dosage: 10 MG, UNK
     Dates: start: 2006
  4. DIAMOX SEQUELS [Concomitant]
     Active Substance: ACETAZOLAMIDE
     Indication: GLAUCOMA
     Dosage: UNK
     Dates: start: 2006
  5. MINIDIAB [Suspect]
     Active Substance: GLIPIZIDE
     Dosage: 5 MG, THREE TIMES A DAY
     Route: 048
     Dates: start: 201405
  6. SIMVASTATIN. [Concomitant]
     Active Substance: SIMVASTATIN
     Indication: BLOOD CHOLESTEROL INCREASED
     Dosage: UNK
     Dates: start: 2006
  7. FUROSEMIDE. [Concomitant]
     Active Substance: FUROSEMIDE
     Dosage: UNK
     Dates: start: 2006
  8. CARVEDILOL. [Concomitant]
     Active Substance: CARVEDILOL

REACTIONS (5)
  - Spinal pain [Recovered/Resolved]
  - Blood glucose increased [Recovered/Resolved]
  - Blood glucose fluctuation [Recovered/Resolved]
  - Drug ineffective [Recovered/Resolved]
  - Spinal disorder [Recovered/Resolved]

NARRATIVE: CASE EVENT DATE: 2014
